FAERS Safety Report 23009655 (Version 2)
Quarter: 2023Q4

REPORT INFORMATION
  Report Type: Report from Study
  Country: US (occurrence: US)
  Receive Date: 20230929
  Receipt Date: 20231006
  Transmission Date: 20240110
  Serious: Yes (Hospitalization, Other)
  Sender: FDA-Public Use
  Company Number: US-UCBSA-2023003676

PATIENT
  Age: 34 Year
  Sex: Female

DRUGS (2)
  1. LEVETIRACETAM [Suspect]
     Active Substance: LEVETIRACETAM
     Indication: Epilepsy
     Dosage: 500 MILLIGRAM,3 TABLETS TWICE DAILY
     Dates: start: 2009
  2. LEVETIRACETAM [Suspect]
     Active Substance: LEVETIRACETAM
     Indication: Seizure

REACTIONS (11)
  - Seizure [Not Recovered/Not Resolved]
  - Endotracheal intubation [Unknown]
  - Overdose [Unknown]
  - Laryngeal injury [Not Recovered/Not Resolved]
  - Pharyngeal operation [Unknown]
  - Pharyngeal mass [Unknown]
  - Seasonal allergy [Not Recovered/Not Resolved]
  - Dysphemia [Not Recovered/Not Resolved]
  - Dissociative disorder [Not Recovered/Not Resolved]
  - Feeling abnormal [Not Recovered/Not Resolved]
  - Endoscopy [Not Recovered/Not Resolved]

NARRATIVE: CASE EVENT DATE: 20221207
